FAERS Safety Report 25320890 (Version 2)
Quarter: 2025Q2

REPORT INFORMATION
  Report Type: Spontaneous
  Country: US (occurrence: US)
  Receive Date: 20250515
  Receipt Date: 20250519
  Transmission Date: 20250717
  Serious: No
  Sender: SANOFI AVENTIS
  Company Number: US-SA-2025SA136750

PATIENT
  Age: 70 Year
  Sex: Male

DRUGS (16)
  1. REZUROCK [Suspect]
     Active Substance: BELUMOSUDIL
     Indication: Bone marrow transplant
     Dosage: 200 MG, QD
     Route: 048
  2. LASIX [Concomitant]
     Active Substance: FUROSEMIDE
     Route: 048
  3. LEVOTHYROXINE SODIUM [Concomitant]
     Active Substance: LEVOTHYROXINE SODIUM
     Route: 048
  4. SIROLIMUS [Concomitant]
     Active Substance: SIROLIMUS
     Route: 048
  5. VALACYCLOVIR HYDROCHLORIDE [Concomitant]
     Active Substance: VALACYCLOVIR HYDROCHLORIDE
     Route: 048
  6. ZOFRAN [Concomitant]
     Active Substance: ONDANSETRON HYDROCHLORIDE
     Route: 048
  7. ATOVAQUONE [Concomitant]
     Active Substance: ATOVAQUONE
     Route: 048
  8. HIBICLENS [Concomitant]
     Active Substance: CHLORHEXIDINE GLUCONATE
  9. HYDROCORTISONE [Concomitant]
     Active Substance: HYDROCORTISONE
  10. IBUPROFEN [Concomitant]
     Active Substance: IBUPROFEN
     Route: 048
  11. NOXAFIL [Concomitant]
     Active Substance: POSACONAZOLE
     Route: 048
  12. PREVYMIS [Concomitant]
     Active Substance: LETERMOVIR
     Route: 048
  13. IMODIUM A-D [Concomitant]
     Active Substance: LOPERAMIDE HYDROCHLORIDE
  14. TYLENOL [Concomitant]
     Active Substance: ACETAMINOPHEN
  15. MAGNESIUM OXIDE [Concomitant]
     Active Substance: MAGNESIUM OXIDE
  16. VITAMINS [Concomitant]
     Active Substance: VITAMINS

REACTIONS (5)
  - Blister [Recovering/Resolving]
  - Skin wound [Not Recovered/Not Resolved]
  - Rash [Not Recovered/Not Resolved]
  - Diarrhoea [Recovering/Resolving]
  - Product use in unapproved indication [Unknown]
